FAERS Safety Report 17010270 (Version 7)
Quarter: 2020Q1

REPORT INFORMATION
  Report Type: Spontaneous
  Country: US (occurrence: US)
  Receive Date: 20191108
  Receipt Date: 20200324
  Transmission Date: 20200409
  Serious: Yes (Hospitalization)
  Sender: FDA-Public Use
  Company Number: US-PFIZER INC-2019057659

PATIENT
  Age: 70 Year
  Sex: Female
  Weight: 124 kg

DRUGS (1)
  1. IBRANCE [Suspect]
     Active Substance: PALBOCICLIB
     Indication: BREAST CANCER FEMALE
     Dosage: 75 MG, CYCLIC (ONCE DAILY EVERY 21 DAYS, 7 DAYS OFF)

REACTIONS (4)
  - Intentional product use issue [Recovered/Resolved]
  - Fatigue [Unknown]
  - Product size issue [Recovered/Resolved]
  - Dysphagia [Recovered/Resolved]
